FAERS Safety Report 22294009 (Version 5)
Quarter: 2024Q3

REPORT INFORMATION
  Report Type: Spontaneous
  Country: US (occurrence: US)
  Receive Date: 20230508
  Receipt Date: 20240712
  Transmission Date: 20241016
  Serious: Yes (Hospitalization, Other)
  Sender: PFIZER
  Company Number: US-PFIZER INC-PV202300050951

PATIENT
  Age: 75 Year
  Sex: Female

DRUGS (1)
  1. IBRANCE [Suspect]
     Active Substance: PALBOCICLIB
     Indication: Breast cancer female
     Dosage: 125 MG

REACTIONS (12)
  - Ascites [Unknown]
  - Chest discomfort [Unknown]
  - Hypertension [Unknown]
  - Seizure [Unknown]
  - Constipation [Unknown]
  - Urinary retention [Unknown]
  - Dyspnoea [Unknown]
  - Gait disturbance [Unknown]
  - Asthenia [Unknown]
  - Visual impairment [Recovering/Resolving]
  - Vein collapse [Unknown]
  - Malaise [Unknown]

NARRATIVE: CASE EVENT DATE: 20230810
